FAERS Safety Report 4570266-6 (Version None)
Quarter: 2005Q1

REPORT INFORMATION
  Report Type: 
  Country: None (occurrence: None)
  Receive Date: 20050127
  Receipt Date: 20050127
  Transmission Date: 20050727
  Serious: Yes (Hospitalization)
  Sender: FDA-Public Use
  Company Number: None

PATIENT
  Sex: Male
  Weight: 71 kg

DRUGS (22)
  1. CISPLATIN [Suspect]
     Indication: SQUAMOUS CELL CARCINOMA
     Dosage: 193 MG DAYS 1 AND 22 INTRAVENOUS
     Route: 042
     Dates: start: 20041213, end: 20050111
  2. EXTERNAL BEAM RADIATION THERAPY [Suspect]
     Indication: SQUAMOUS CELL CARCINOMA
     Dosage: 180 CGY  DAILY
     Dates: start: 20041213, end: 20050124
  3. ALTRACE [Concomitant]
  4. PREVACID [Concomitant]
  5. BEXTRA [Concomitant]
  6. FOLIC ACID [Concomitant]
  7. TOPROL-XL [Concomitant]
  8. AVANDIA [Concomitant]
  9. ZOCOR [Concomitant]
  10. FOSAMAX [Concomitant]
  11. VITAMIN E [Concomitant]
  12. M.V.I. [Concomitant]
  13. OXYCONTIN [Concomitant]
  14. ZOFRAN [Concomitant]
  15. GLUCOSAMINE [Concomitant]
  16. CHONDROITIN [Concomitant]
  17. CITRACEL [Concomitant]
  18. CALCIUM CITRATE [Concomitant]
  19. ASPIRIN [Concomitant]
  20. ENSURE PLUS [Concomitant]
  21. SKANDI SHAKES [Concomitant]
  22. DIFLUCAN [Concomitant]

REACTIONS (3)
  - HYPONATRAEMIA [None]
  - NEUTROPENIA [None]
  - PNEUMONIA [None]
